FAERS Safety Report 4471264-3 (Version None)
Quarter: 2004Q4

REPORT INFORMATION
  Report Type: 
  Country: None (occurrence: None)
  Receive Date: 20041011
  Receipt Date: 20041005
  Transmission Date: 20050328
  Serious: Yes (Other)
  Sender: FDA-Public Use
  Company Number: IE-MERCK-0410GBR00060

PATIENT
  Age: 58 Year
  Sex: Female

DRUGS (5)
  1. ALBUTEROL SULFATE AND IPRATROPIUM BROMIDE [Concomitant]
     Route: 065
  2. ASPIRIN [Concomitant]
     Route: 065
  3. BECLOMETHASONE DIPROPIONATE [Concomitant]
     Route: 065
  4. CLOPIDOGREL BISULFATE [Concomitant]
     Route: 065
  5. VIOXX [Suspect]
     Indication: RHEUMATOID ARTHRITIS
     Route: 048
     Dates: start: 20030301

REACTIONS (1)
  - CEREBROVASCULAR ACCIDENT [None]
